FAERS Safety Report 7387431-5 (Version None)
Quarter: 2011Q1

REPORT INFORMATION
  Report Type: 
  Country: None (occurrence: None)
  Receive Date: 20110331
  Receipt Date: 20110329
  Transmission Date: 20110831
  Serious: Yes (Other)
  Sender: FDA-Public Use
  Company Number: US-ABBOTT-11P-163-0714894-00

PATIENT
  Sex: Female

DRUGS (1)
  1. HUMIRA [Suspect]
     Indication: PSORIASIS
     Dates: start: 20090101

REACTIONS (5)
  - MYALGIA [None]
  - PAIN [None]
  - PYREXIA [None]
  - VOMITING [None]
  - HEART RATE INCREASED [None]
